FAERS Safety Report 22075687 (Version 1)
Quarter: 2023Q1

REPORT INFORMATION
  Report Type: Report from Study
  Country: CA (occurrence: CA)
  Receive Date: 20230308
  Receipt Date: 20230308
  Transmission Date: 20230418
  Serious: Yes (Other)
  Sender: FDA-Public Use
  Company Number: CA-GILEAD-2023-0614104

PATIENT
  Sex: Female

DRUGS (3)
  1. SACITUZUMAB GOVITECAN-HZIY [Suspect]
     Active Substance: SACITUZUMAB GOVITECAN-HZIY
     Indication: Triple negative breast cancer
     Dosage: 640 MG, C2D1
     Route: 042
     Dates: start: 20230113
  2. SACITUZUMAB GOVITECAN-HZIY [Suspect]
     Active Substance: SACITUZUMAB GOVITECAN-HZIY
     Dosage: 640 MG, C4D1
     Route: 042
     Dates: start: 20230224
  3. PLATINUM [Concomitant]
     Active Substance: PLATINUM
     Dates: start: 2022, end: 202212

REACTIONS (4)
  - Disease progression [Unknown]
  - Pneumonia [Unknown]
  - Upper respiratory tract infection [Unknown]
  - Inappropriate schedule of product administration [Recovered/Resolved]
